FAERS Safety Report 20775416 (Version 1)
Quarter: 2022Q2

REPORT INFORMATION
  Report Type: Spontaneous
  Country: US (occurrence: US)
  Receive Date: 20220502
  Receipt Date: 20220502
  Transmission Date: 20220721
  Serious: Yes (Hospitalization)
  Sender: FDA-Public Use
  Company Number: US-BAYER-2022A062684

PATIENT
  Sex: Male

DRUGS (3)
  1. STIVARGA [Suspect]
     Active Substance: REGORAFENIB
     Indication: Neoplasm malignant
     Dosage: 40 MG, QD
     Route: 048
     Dates: start: 20220223
  2. STIVARGA [Suspect]
     Active Substance: REGORAFENIB
     Indication: Neoplasm malignant
     Dosage: UNK
     Dates: start: 20220228, end: 20220319
  3. LONSURF [Suspect]
     Active Substance: TIPIRACIL HYDROCHLORIDE\TRIFLURIDINE
     Indication: Rectal cancer
     Dosage: 80 MG, BID
     Route: 048

REACTIONS (7)
  - Hospitalisation [None]
  - Pruritus [Unknown]
  - Blood pressure increased [Unknown]
  - Red blood cell count decreased [Unknown]
  - Fatigue [Unknown]
  - Decreased appetite [Unknown]
  - Off label use [None]

NARRATIVE: CASE EVENT DATE: 20220223
